FAERS Safety Report 14728480 (Version 2)
Quarter: 2018Q2

REPORT INFORMATION
  Report Type: Report from Study
  Country: US (occurrence: US)
  Receive Date: 20180406
  Receipt Date: 20180417
  Transmission Date: 20180711
  Serious: Yes (Other)
  Sender: FDA-Public Use
  Company Number: US-BAYER-2018-048741

PATIENT
  Age: 47 Year
  Sex: Female

DRUGS (2)
  1. STIVARGA [Suspect]
     Active Substance: REGORAFENIB
     Indication: COLON CANCER
     Dosage: 80 MG, DAILY
     Route: 048
     Dates: start: 20180312, end: 20180324
  2. STIVARGA [Suspect]
     Active Substance: REGORAFENIB
     Indication: COLON CANCER
     Dosage: 120 MG, DAILY
     Route: 048
     Dates: start: 20180308, end: 20180311

REACTIONS (7)
  - Dyspepsia [Not Recovered/Not Resolved]
  - Off label use [None]
  - Abdominal pain upper [Not Recovered/Not Resolved]
  - Gastric ulcer [None]
  - Nausea [Not Recovered/Not Resolved]
  - Intentional product misuse [None]
  - Nausea [None]

NARRATIVE: CASE EVENT DATE: 2018
